FAERS Safety Report 6003700-5 (Version None)
Quarter: 2008Q4

REPORT INFORMATION
  Report Type: 
  Country: None (occurrence: None)
  Receive Date: 20081212
  Receipt Date: 20081212
  Transmission Date: 20090506
  Serious: Yes (Disabling)
  Sender: FDA-Public Use
  Company Number: None

PATIENT
  Age: 59 Year
  Sex: Female
  Weight: 75.7507 kg

DRUGS (6)
  1. TAXOTERE [Suspect]
     Indication: BREAST CANCER
     Dosage: 130 MG EVERY 21 DAYS IV DRIP REACTION ON THE 3R DOSE
     Route: 041
     Dates: start: 20081119, end: 20081210
  2. TAXOTERE [Suspect]
  3. ONDANSETRON [Concomitant]
  4. DEXAMETHASONE [Concomitant]
  5. CYCLOPHOSPHAMIDE [Concomitant]
  6. HERCEPTIN [Concomitant]

REACTIONS (4)
  - BACK PAIN [None]
  - HYPOAESTHESIA FACIAL [None]
  - MYODESOPSIA [None]
  - NAUSEA [None]
